FAERS Safety Report 16931820 (Version 2)
Quarter: 2019Q4

REPORT INFORMATION
  Report Type: Spontaneous
  Country: CY (occurrence: CY)
  Receive Date: 20191017
  Receipt Date: 20191121
  Transmission Date: 20200122
  Serious: Yes (Death)
  Sender: FDA-Public Use
  Company Number: CY-ELI_LILLY_AND_COMPANY-CY201910006454

PATIENT
  Sex: Male

DRUGS (1)
  1. RAMUCIRUMAB [Suspect]
     Active Substance: RAMUCIRUMAB
     Indication: GASTRIC CANCER
     Dosage: UNK, CYCLICAL
     Route: 065

REACTIONS (7)
  - Circulatory collapse [Fatal]
  - Rectal haemorrhage [Fatal]
  - Upper gastrointestinal haemorrhage [Fatal]
  - Dyspnoea [Fatal]
  - Malaise [Unknown]
  - Syncope [Fatal]
  - Haematemesis [Fatal]
